FAERS Safety Report 7166698-2 (Version None)
Quarter: 2010Q4

REPORT INFORMATION
  Report Type: 
  Country: None (occurrence: None)
  Receive Date: 20101216
  Receipt Date: 20101207
  Transmission Date: 20110411
  Serious: Yes (Hospitalization)
  Sender: FDA-Public Use
  Company Number: ES-SANOFI-AVENTIS-2010SA074348

PATIENT
  Age: 81 Year
  Sex: Female

DRUGS (5)
  1. RIFALDIN [Suspect]
     Route: 048
  2. PREDNISONA ALONGA [Suspect]
  3. PYRAZINAMIDE [Concomitant]
     Route: 048
  4. ETHAMBUTOL HYDROCHLORIDE [Concomitant]
     Route: 048
  5. ISONIAZID [Concomitant]
     Route: 048

REACTIONS (4)
  - APHASIA [None]
  - FACIAL PAIN [None]
  - TUBERCULOMA OF CENTRAL NERVOUS SYSTEM [None]
  - VIITH NERVE PARALYSIS [None]
